FAERS Safety Report 15048215 (Version 2)
Quarter: 2019Q4

REPORT INFORMATION
  Report Type: Spontaneous
  Country: GB (occurrence: GB)
  Receive Date: 20180622
  Receipt Date: 20191107
  Transmission Date: 20200122
  Serious: Yes (Death, Hospitalization, Other)
  Sender: FDA-Public Use
  Company Number: GB-COLGATE PALMOLIVE COMPANY-20180601410

PATIENT

DRUGS (3)
  1. CHLORHEXIDINE UNSPECIFIED [Suspect]
     Active Substance: CHLORHEXIDINE
     Indication: TOOTHACHE
     Dosage: UNK
     Route: 065
  2. CHLORHEXIDINE UNSPECIFIED [Suspect]
     Active Substance: CHLORHEXIDINE
     Indication: ANTIBIOTIC PROPHYLAXIS
     Dosage: UNK UNK, UNKNOWN
     Route: 048
     Dates: start: 200909
  3. CHLORHEXIDINE UNSPECIFIED [Suspect]
     Active Substance: CHLORHEXIDINE
     Indication: TOOTH DISORDER
     Dosage: UNK

REACTIONS (4)
  - Loss of consciousness [Fatal]
  - Drug hypersensitivity [Fatal]
  - Anaphylactic reaction [Fatal]
  - Respiratory arrest [Fatal]

NARRATIVE: CASE EVENT DATE: 200909
